FAERS Safety Report 24044853 (Version 1)
Quarter: 2024Q3

REPORT INFORMATION
  Report Type: Spontaneous
  Country: FR (occurrence: FR)
  Receive Date: 20240703
  Receipt Date: 20240703
  Transmission Date: 20241017
  Serious: Yes (Life-Threatening, Hospitalization, Other)
  Sender: RANBAXY
  Company Number: FR-SUN PHARMACEUTICAL INDUSTRIES LTD-2024R1-454293

PATIENT
  Age: 30 Year
  Sex: Male

DRUGS (3)
  1. ALPRAZOLAM [Suspect]
     Active Substance: ALPRAZOLAM
     Indication: Schizophrenia
     Dosage: UNK
     Route: 065
  2. AMISULPRIDE [Suspect]
     Active Substance: AMISULPRIDE
     Indication: Schizophrenia
     Dosage: UNK
     Route: 065
  3. N-ETHYLHEXEDRONE [Suspect]
     Active Substance: N-ETHYLHEXEDRONE
     Indication: Product used for unknown indication
     Dosage: UNK
     Route: 065

REACTIONS (5)
  - Inappropriate antidiuretic hormone secretion [Unknown]
  - Toxicity to various agents [Unknown]
  - Hyperthermia [Unknown]
  - Coma [Unknown]
  - Generalised tonic-clonic seizure [Unknown]
